FAERS Safety Report 19591016 (Version 1)
Quarter: 2021Q3

REPORT INFORMATION
  Report Type: Spontaneous
  Country: IL (occurrence: IL)
  Receive Date: 20210722
  Receipt Date: 20210722
  Transmission Date: 20211014
  Serious: Yes (Other)
  Sender: FDA-Public Use
  Company Number: IL-ROCHE-2870978

PATIENT
  Sex: Female

DRUGS (1)
  1. OCREVUS [Suspect]
     Active Substance: OCRELIZUMAB
     Indication: PRODUCT USED FOR UNKNOWN INDICATION
     Route: 065

REACTIONS (7)
  - Limb discomfort [Unknown]
  - Loss of personal independence in daily activities [Unknown]
  - Seizure [Unknown]
  - Impaired driving ability [Unknown]
  - Fatigue [Unknown]
  - Asthenia [Unknown]
  - Taste disorder [Unknown]
